FAERS Safety Report 25669645 (Version 1)
Quarter: 2025Q3

REPORT INFORMATION
  Report Type: Spontaneous
  Country: EU (occurrence: EU)
  Receive Date: 20250812
  Receipt Date: 20250812
  Transmission Date: 20251020
  Serious: Yes (Other)
  Sender: CELLTRION
  Company Number: EU-AMGEN-GRCSP2025107990

PATIENT

DRUGS (2)
  1. BEVACIZUMAB [Suspect]
     Active Substance: BEVACIZUMAB
     Indication: Lung adenocarcinoma
     Route: 065
  2. CARBOPLATIN;PEMETREXED [Concomitant]
     Route: 065

REACTIONS (2)
  - Lung adenocarcinoma [Unknown]
  - Arterial stenosis [Unknown]
